FAERS Safety Report 9138735 (Version 1)
Quarter: 2013Q1

REPORT INFORMATION
  Report Type: Other
  Country: US (occurrence: US)
  Receive Date: 20130305
  Receipt Date: 20130305
  Transmission Date: 20140127
  Serious: Yes (Other)
  Sender: FDA-Public Use
  Company Number: US-ENDO PHARMACEUTICALS INC.-PERC20100014

PATIENT
  Age: 52 Year
  Sex: Male

DRUGS (3)
  1. PERCOCET [Suspect]
     Indication: PAIN
     Route: 048
     Dates: start: 20091222, end: 20091228
  2. OXYCONTIN [Suspect]
     Indication: PAIN
     Dates: start: 20091222, end: 20091228
  3. ULTRAM [Suspect]
     Indication: PRODUCT USED FOR UNKNOWN INDICATION
     Dates: end: 20091228

REACTIONS (5)
  - Hypopnoea [Recovered/Resolved]
  - Respiratory arrest [Recovered/Resolved]
  - Cyanosis [Recovered/Resolved]
  - Miosis [Recovered/Resolved]
  - Amnesia [Unknown]
